FAERS Safety Report 12721299 (Version 1)
Quarter: 2016Q3

REPORT INFORMATION
  Report Type: Report from Study
  Country: CA (occurrence: CA)
  Receive Date: 20160907
  Receipt Date: 20160907
  Transmission Date: 20161109
  Serious: Yes (Other)
  Sender: FDA-Public Use
  Company Number: CA-JNJFOC-20160719395

PATIENT
  Age: 33 Year
  Sex: Female
  Weight: 59 kg

DRUGS (5)
  1. FOLIC ACID. [Concomitant]
     Active Substance: FOLIC ACID
     Route: 065
  2. SYNTHROID [Concomitant]
     Active Substance: LEVOTHYROXINE SODIUM
     Route: 065
  3. IRON [Concomitant]
     Active Substance: IRON
     Route: 065
  4. REMICADE [Suspect]
     Active Substance: INFLIXIMAB
     Indication: COLITIS ULCERATIVE
     Route: 042
     Dates: start: 20160721
  5. REMICADE [Suspect]
     Active Substance: INFLIXIMAB
     Indication: COLITIS ULCERATIVE
     Dosage: 10 MG/KG
     Route: 042
     Dates: start: 20140506

REACTIONS (7)
  - Abortion spontaneous [Recovered/Resolved]
  - Product use issue [Unknown]
  - Haematochezia [Recovering/Resolving]
  - Exposure during pregnancy [Recovered/Resolved]
  - General physical health deterioration [Unknown]
  - Abdominal pain [Not Recovered/Not Resolved]
  - Off label use [Unknown]

NARRATIVE: CASE EVENT DATE: 20140506
